FAERS Safety Report 7967807-5 (Version None)
Quarter: 2011Q4

REPORT INFORMATION
  Report Type: 
  Country: None (occurrence: None)
  Receive Date: 20111209
  Receipt Date: 20111205
  Transmission Date: 20120403
  Serious: No
  Sender: FDA-Public Use
  Company Number: US-PFIZER INC-2011281303

PATIENT
  Sex: Female
  Weight: 53.1 kg

DRUGS (2)
  1. PREMPRO [Suspect]
     Indication: HORMONE LEVEL ABNORMAL
  2. PREMPRO [Suspect]
     Indication: HORMONE REPLACEMENT THERAPY
     Dosage: 0.625/2.5 MG, 1X/DAY
     Route: 048
     Dates: start: 20111113, end: 20111115

REACTIONS (2)
  - ORAL DISCOMFORT [None]
  - VISION BLURRED [None]
